FAERS Safety Report 10706968 (Version 1)
Quarter: 2015Q1

REPORT INFORMATION
  Report Type: Spontaneous
  Country: GB (occurrence: None)
  Receive Date: 20150112
  Receipt Date: 20150112
  Transmission Date: 20150721
  Serious: No
  Sender: FDA-Public Use
  Company Number: None

PATIENT
  Age: 57 Year
  Sex: Male
  Weight: 76 kg

DRUGS (1)
  1. INDAPAMIDE. [Suspect]
     Active Substance: INDAPAMIDE
     Indication: HYPERTENSION
     Dosage: 2.5MG X1  ONCE DAILY TAKEN BY MOUTH
     Route: 048

REACTIONS (3)
  - Decreased activity [None]
  - Abnormal behaviour [None]
  - Lethargy [None]

NARRATIVE: CASE EVENT DATE: 20150110
